FAERS Safety Report 8605188-4 (Version None)
Quarter: 2012Q3

REPORT INFORMATION
  Report Type: 
  Country: None (occurrence: None)
  Receive Date: 20120820
  Receipt Date: 20120810
  Transmission Date: 20120928
  Serious: Yes (Hospitalization)
  Sender: FDA-Public Use
  Company Number: US-US-EMD SERONO, INC.-7049851

PATIENT
  Sex: Female
  Weight: 95 kg

DRUGS (3)
  1. COREG [Concomitant]
     Indication: DIABETES MELLITUS
  2. REBIF [Suspect]
     Indication: MULTIPLE SCLEROSIS
     Route: 058
     Dates: start: 20030925
  3. INSULIN [Concomitant]
     Indication: DIABETES MELLITUS

REACTIONS (3)
  - MUSCLE SPASTICITY [None]
  - ATRIAL FIBRILLATION [None]
  - HYPERTENSION [None]
